FAERS Safety Report 10426904 (Version 1)
Quarter: 2014Q3

REPORT INFORMATION
  Report Type: Spontaneous
  Country: CA (occurrence: None)
  Receive Date: 20140902
  Receipt Date: 20140902
  Transmission Date: 20150326
  Serious: Yes (Other)
  Sender: FDA-Public Use
  Company Number: None

PATIENT
  Age: 50 Year
  Sex: Male
  Weight: 97.52 kg

DRUGS (1)
  1. AMLODIPINE BESYLATE 5MG NO NAME NOT VORVASC [Suspect]
     Active Substance: AMLODIPINE BESYLATE
     Indication: HYPERTENSION
     Dosage: 1 A DAY  ONCE DAILY TAKEN BY MOUTH
     Route: 048
     Dates: start: 20140822, end: 20140827

REACTIONS (6)
  - Telangiectasia [None]
  - Scab [None]
  - Rash [None]
  - Contusion [None]
  - Skin swelling [None]
  - Haemorrhage [None]

NARRATIVE: CASE EVENT DATE: 20140830
